FAERS Safety Report 14944502 (Version 1)
Quarter: 2018Q2

REPORT INFORMATION
  Report Type: Spontaneous
  Country: US (occurrence: US)
  Receive Date: 20180529
  Receipt Date: 20180529
  Transmission Date: 20180711
  Serious: Yes (Other)
  Sender: FDA-Public Use
  Company Number: US-CONCORDIA PHARMACEUTICALS INC.-GSH201805-001732

PATIENT
  Age: 50 Year
  Sex: Female

DRUGS (23)
  1. PLAQUENIL [Suspect]
     Active Substance: HYDROXYCHLOROQUINE SULFATE
     Indication: PRODUCT USED FOR UNKNOWN INDICATION
     Dates: start: 2011
  2. BENLYSTA [Suspect]
     Active Substance: BELIMUMAB
     Indication: SYSTEMIC LUPUS ERYTHEMATOSUS
     Dosage: ROUTE: INTRAVENOUS INF
     Dates: start: 20180502
  3. CRESTOR [Concomitant]
     Active Substance: ROSUVASTATIN CALCIUM
  4. RITALIN [Concomitant]
     Active Substance: METHYLPHENIDATE HYDROCHLORIDE
  5. ALBUTEROL NEBULIZER [Concomitant]
     Active Substance: ALBUTEROL
  6. IRON [Concomitant]
     Active Substance: IRON
  7. VITAMIN B [Concomitant]
     Active Substance: VITAMIN B
  8. PROAIR HFA [Concomitant]
     Active Substance: ALBUTEROL SULFATE
  9. CELEBREX [Concomitant]
     Active Substance: CELECOXIB
  10. VITAMIN D [Concomitant]
     Active Substance: CHOLECALCIFEROL
  11. NORVASC [Concomitant]
     Active Substance: AMLODIPINE BESYLATE
  12. BACLOFEN. [Concomitant]
     Active Substance: BACLOFEN
  13. LARIN FE [Concomitant]
     Active Substance: ETHINYL ESTRADIOL\NORETHINDRONE ACETATE
  14. LYRICA [Concomitant]
     Active Substance: PREGABALIN
  15. BENLYSTA [Suspect]
     Active Substance: BELIMUMAB
     Indication: SJOGREN^S SYNDROME
  16. HYDROCODONE [Concomitant]
     Active Substance: HYDROCODONE
  17. TOPAMAX [Concomitant]
     Active Substance: TOPIRAMATE
  18. ATIVAN [Concomitant]
     Active Substance: LORAZEPAM
  19. ADVAIR HFA [Concomitant]
     Active Substance: FLUTICASONE PROPIONATE\SALMETEROL XINAFOATE
  20. CYMBALTA [Concomitant]
     Active Substance: DULOXETINE HYDROCHLORIDE
  21. HYSINGLA ER [Concomitant]
     Active Substance: HYDROCODONE BITARTRATE
  22. NEXIUM [Concomitant]
     Active Substance: ESOMEPRAZOLE MAGNESIUM
  23. AMBIEN [Concomitant]
     Active Substance: ZOLPIDEM TARTRATE

REACTIONS (8)
  - Blindness unilateral [None]
  - Blindness [Not Recovered/Not Resolved]
  - Ocular discomfort [Unknown]
  - Sinusitis [Recovering/Resolving]
  - Product use in unapproved indication [Unknown]
  - Vision blurred [Unknown]
  - Bronchitis [Recovering/Resolving]
  - Immunodeficiency [None]

NARRATIVE: CASE EVENT DATE: 20180320
